FAERS Safety Report 5108212-9 (Version None)
Quarter: 2006Q3

REPORT INFORMATION
  Report Type: 
  Country: None (occurrence: None)
  Receive Date: 20060919
  Receipt Date: 20060912
  Transmission Date: 20061208
  Serious: Yes (Hospitalization)
  Sender: FDA-Public Use
  Company Number: NL-SANOFI-SYNTHELABO-F01200601962

PATIENT
  Sex: Female

DRUGS (8)
  1. METOCLOPRAMIDE [Concomitant]
     Route: 065
  2. LOPERAMIDE [Concomitant]
     Route: 065
  3. PARACETAMOL [Concomitant]
     Route: 065
  4. OXAZEPAM [Concomitant]
     Route: 065
  5. PANTOROL [Concomitant]
     Route: 065
  6. AVASTIN [Suspect]
     Route: 041
     Dates: start: 20060817, end: 20060817
  7. CAPECITABINE [Suspect]
     Dosage: 1000MG/M2 ORALLY B.I.D. ON DAY 1-14 (1250MG/M2 AFTER 6 CYCLES)
     Route: 048
     Dates: start: 20060817, end: 20060817
  8. OXALIPLATIN [Suspect]
     Indication: COLORECTAL CANCER
     Route: 041
     Dates: start: 20060817, end: 20060817

REACTIONS (2)
  - DIARRHOEA HAEMORRHAGIC [None]
  - VOMITING [None]
